FAERS Safety Report 6133801-2 (Version None)
Quarter: 2009Q1

REPORT INFORMATION
  Report Type: 
  Country: None (occurrence: None)
  Receive Date: 20090326
  Receipt Date: 20090323
  Transmission Date: 20090719
  Serious: Yes (Hospitalization, Other)
  Sender: FDA-Public Use
  Company Number: US-ASTRAZENECA-2009UW07358

PATIENT
  Age: 21981 Day
  Sex: Female

DRUGS (2)
  1. ARIMIDEX [Suspect]
     Route: 048
     Dates: start: 20070212
  2. CRESTOR [Suspect]
     Route: 048
     Dates: start: 20070212

REACTIONS (2)
  - SINUSITIS [None]
  - ULCERATIVE KERATITIS [None]
